FAERS Safety Report 9920858 (Version 2)
Quarter: 2014Q2

REPORT INFORMATION
  Report Type: Other
  Country: GB (occurrence: GB)
  Receive Date: 20140225
  Receipt Date: 20140415
  Transmission Date: 20141212
  Serious: Yes (Other)
  Sender: FDA-Public Use
  Company Number: GB-SUN PHARMACEUTICAL INDUSTRIES LTD-2014SUN00363

PATIENT
  Age: 51 Year
  Sex: Female
  Weight: 70 kg

DRUGS (6)
  1. LETROZOLE [Suspect]
     Indication: BREAST CANCER METASTATIC
     Dosage: 2.5 MG, OD
     Route: 048
     Dates: start: 20140101, end: 20140114
  2. BENDROFLUMETHIAZIDE [Concomitant]
     Dosage: 2.5 MG, OD
  3. BENDROFLUMETHIAZIDE [Concomitant]
  4. LOSARTAN [Concomitant]
  5. OMEPRAZOLE MAGNESIUM [Concomitant]
  6. PAROXETINE [Concomitant]

REACTIONS (3)
  - Diplopia [Recovering/Resolving]
  - Eye movement disorder [Recovering/Resolving]
  - Visual impairment [Recovering/Resolving]
